FAERS Safety Report 5531537-X (Version None)
Quarter: 2007Q4

REPORT INFORMATION
  Report Type: 
  Country: None (occurrence: None)
  Receive Date: 20071203
  Receipt Date: 20071127
  Transmission Date: 20080405
  Serious: Yes (Death)
  Sender: FDA-Public Use
  Company Number: BR-NOVOPROD-269847

PATIENT
  Weight: 3 kg

DRUGS (2)
  1. NOVOSEVEN [Suspect]
     Indication: CARDIAC OPERATION
     Dosage: 7.2 MG, SINGLE
     Route: 042
  2. NOVOSEVEN [Suspect]

REACTIONS (1)
  - DEATH [None]
